FAERS Safety Report 5505267-4 (Version None)
Quarter: 2007Q4

REPORT INFORMATION
  Report Type: 
  Country: None (occurrence: None)
  Receive Date: 20071102
  Receipt Date: 20071019
  Transmission Date: 20080405
  Serious: Yes (Hospitalization)
  Sender: FDA-Public Use
  Company Number: IT-RANBAXY-2007RR-10880

PATIENT

DRUGS (1)
  1. AMOXICILLINA RANBAXY 1 G COMPRESSE SOLUBILI [Suspect]

REACTIONS (3)
  - HYPERHIDROSIS [None]
  - MALAISE [None]
  - PRURITUS [None]
